FAERS Safety Report 19411000 (Version 1)
Quarter: 2021Q2

REPORT INFORMATION
  Report Type: Spontaneous
  Country: NL (occurrence: NL)
  Receive Date: 20210614
  Receipt Date: 20210614
  Transmission Date: 20210717
  Serious: Yes (Other)
  Sender: FDA-Public Use
  Company Number: NL-AMGEN-NLDSP2021089132

PATIENT

DRUGS (4)
  1. PROLIA [Suspect]
     Active Substance: DENOSUMAB
     Indication: ALBRIGHT^S DISEASE
  2. PROLIA [Suspect]
     Active Substance: DENOSUMAB
     Indication: OSTEOPOROSIS
  3. ACETAMINOPHEN. [Concomitant]
     Active Substance: ACETAMINOPHEN
     Indication: PAIN
  4. PROLIA [Suspect]
     Active Substance: DENOSUMAB
     Indication: FIBROUS DYSPLASIA OF BONE
     Dosage: UNK
     Route: 058

REACTIONS (24)
  - Rash [Unknown]
  - Fibrous dysplasia of bone [Unknown]
  - Diarrhoea [Unknown]
  - Hyperaesthesia teeth [Unknown]
  - Off label use [Unknown]
  - Fatigue [Unknown]
  - Headache [Unknown]
  - Therapeutic product effect incomplete [Unknown]
  - Dry skin [Unknown]
  - Flatulence [Unknown]
  - Onychoclasis [Unknown]
  - Oral mucosal blistering [Unknown]
  - Rebound effect [Unknown]
  - Hyperparathyroidism [Unknown]
  - Vomiting [Unknown]
  - Respiratory tract infection [Unknown]
  - Musculoskeletal stiffness [Unknown]
  - Nausea [Unknown]
  - Hypercalcaemia [Unknown]
  - Osteonecrosis of jaw [Unknown]
  - Malaise [Unknown]
  - Myalgia [Unknown]
  - Bladder discomfort [Unknown]
  - Vertigo [Unknown]
